FAERS Safety Report 6972427-5 (Version None)
Quarter: 2010Q3

REPORT INFORMATION
  Report Type: 
  Country: None (occurrence: None)
  Receive Date: 20100909
  Receipt Date: 20100831
  Transmission Date: 20110219
  Serious: Yes (Hospitalization)
  Sender: FDA-Public Use
  Company Number: FR-ASTRAZENECA-2010SE41449

PATIENT
  Age: 24544 Day
  Sex: Female

DRUGS (6)
  1. MOPRAL [Suspect]
     Route: 048
  2. HUMIRA [Suspect]
     Route: 058
     Dates: start: 20030101, end: 20100630
  3. CORTANCYL [Suspect]
     Route: 048
     Dates: start: 19890101
  4. VOLTAREN [Suspect]
     Route: 048
  5. ACETAMINOPHEN [Suspect]
     Route: 048
  6. LARMABAK [Suspect]
     Route: 031

REACTIONS (3)
  - DIFFUSE VASCULITIS [None]
  - MONONEUROPATHY [None]
  - VASCULITIS NECROTISING [None]
